FAERS Safety Report 4898714-2 (Version None)
Quarter: 2006Q1

REPORT INFORMATION
  Report Type: 
  Country: None (occurrence: None)
  Receive Date: 20060127
  Receipt Date: 20060117
  Transmission Date: 20060701
  Serious: Yes (Disabling, Other)
  Sender: FDA-Public Use
  Company Number: 2006008759

PATIENT
  Sex: Female
  Weight: 68.0396 kg

DRUGS (17)
  1. LIPITOR [Suspect]
     Indication: BLOOD CHOLESTEROL INCREASED
     Dosage: 10 MG (10 MG, 1 IN 1 D),
  2. VITAMIN C (VITAMIN C) [Concomitant]
  3. ZETIA [Concomitant]
  4. SUDAFED 12 HOUR [Concomitant]
  5. LORATADINE [Concomitant]
  6. PRILOSEC [Concomitant]
  7. CHONDROITIN (CHONDROITIN SULFATE) [Concomitant]
  8. GLUCOSAMINE (GLUCOSAMINE) [Concomitant]
  9. MILK THISTLE (SILYMARIN) [Concomitant]
  10. Q-VEL (QUININE SULFATE, TOCOPHEROL) [Concomitant]
  11. ALL OTHER THERAPEUTIC PRODUCTS (ALL OTHER THERAPEUTIC PRODUCTS) [Concomitant]
  12. CARNITINE (CARNITINE) [Concomitant]
  13. MAGNESIUM (MAGNESIUM) [Concomitant]
  14. ALPHA (LIPOIC ACID (THIOCTIC ACID) [Concomitant]
  15. PERCOCET [Concomitant]
  16. FLEXERIL [Concomitant]
  17. ZYRTEC [Concomitant]

REACTIONS (5)
  - ACCIDENT [None]
  - BACK INJURY [None]
  - DEPRESSION [None]
  - GLAUCOMA [None]
  - MYALGIA [None]
